FAERS Safety Report 9037889 (Version 2)
Quarter: 2013Q2

REPORT INFORMATION
  Report Type: Spontaneous
  Country: US (occurrence: US)
  Receive Date: 20130129
  Receipt Date: 20130619
  Transmission Date: 20140414
  Serious: Yes (Life-Threatening, Hospitalization)
  Sender: FDA-Public Use
  Company Number: US-BAYER-2013-010681

PATIENT
  Age: 36 Year
  Sex: Female
  Weight: 65 kg

DRUGS (23)
  1. YAZ [Suspect]
     Indication: CONTRACEPTION
     Dosage: UNK
     Dates: start: 20110721, end: 20120701
  2. YAZ [Suspect]
     Indication: ACNE
  3. YAZ [Suspect]
     Indication: PREMENSTRUAL SYNDROME
  4. YASMIN [Suspect]
     Indication: CONTRACEPTION
     Dosage: UNK
     Dates: start: 20070625, end: 20070721
  5. YASMIN [Suspect]
     Indication: ACNE
  6. YASMIN [Suspect]
     Indication: PREMENSTRUAL SYNDROME
  7. METHOCARBAMOL [Concomitant]
     Indication: BACK PAIN
     Dosage: 500 MG, UNK
     Dates: start: 201205
  8. HYDRAZINE [Concomitant]
     Indication: BACK PAIN
     Dosage: 25 MG, UNK
     Dates: start: 201205
  9. CARISOPRODOL [Concomitant]
     Indication: BACK PAIN
     Dosage: 1 TABLET DAILY
     Dates: start: 201206
  10. MOMETASONE FUROATE [Concomitant]
     Dosage: 1 UNK, UNK
  11. METHYLPREDNISOLONE [Concomitant]
     Dosage: 4 MG, UNK
  12. CYCLOBENZAPRINE [Concomitant]
     Dosage: 10 MG, UNK
  13. CLINDAMYCIN PHOSPHATE [Concomitant]
     Dosage: 1 UNK, UNK
  14. CLOBEX [Concomitant]
     Dosage: 0.05 UNK, UNK
  15. SOLODYN [Concomitant]
     Dosage: 115 MG, UNK
  16. HYDROXYZINE HCL [Concomitant]
     Dosage: 25 MG, UNK
  17. TESTOSTERONE [Concomitant]
  18. ROBAXIN [Concomitant]
  19. ACETAMINOPHEN W/OXYCODONE [Concomitant]
  20. CYANOCOBALAMIN [Concomitant]
  21. FOLIC ACID [Concomitant]
  22. NIACIN [Concomitant]
  23. PRISTIQ [Concomitant]

REACTIONS (8)
  - Pulmonary embolism [None]
  - Deep vein thrombosis [None]
  - Dyspnoea [None]
  - Pain in extremity [None]
  - Anxiety [None]
  - Anhedonia [None]
  - Fear of disease [None]
  - Depression [None]
